FAERS Safety Report 23631267 (Version 1)
Quarter: 2024Q1

REPORT INFORMATION
  Report Type: Spontaneous
  Country: FR (occurrence: FR)
  Receive Date: 20240314
  Receipt Date: 20240314
  Transmission Date: 20240409
  Serious: Yes (Other)
  Sender: FDA-Public Use
  Company Number: FR-SUN PHARMACEUTICAL INDUSTRIES LTD-2024RR-436565

PATIENT
  Age: 30 Year
  Sex: Male

DRUGS (4)
  1. ZOLPIDEM [Suspect]
     Active Substance: ZOLPIDEM TARTRATE
     Indication: Product used for unknown indication
     Dosage: 10 MG / DAY
     Route: 048
     Dates: start: 2023
  2. BROMAZEPAM [Suspect]
     Active Substance: BROMAZEPAM
     Indication: Product used for unknown indication
     Dosage: 3 MG/D
     Route: 048
     Dates: start: 2023
  3. ALPRAZOLAM [Suspect]
     Active Substance: ALPRAZOLAM
     Indication: Product used for unknown indication
     Dosage: 0.5 MG 5 X / DAY
     Route: 048
     Dates: start: 2023
  4. DIAZEPAM [Suspect]
     Active Substance: DIAZEPAM
     Indication: Product used for unknown indication
     Dosage: 10 MG MORNING, NOON AND EVENING, THEN INCREASE TO 6X/D
     Route: 048
     Dates: start: 2023

REACTIONS (1)
  - Drug use disorder [Unknown]

NARRATIVE: CASE EVENT DATE: 20230101
